FAERS Safety Report 7437339-1 (Version None)
Quarter: 2011Q2

REPORT INFORMATION
  Report Type: 
  Country: None (occurrence: None)
  Receive Date: 20110426
  Receipt Date: 20110414
  Transmission Date: 20111010
  Serious: Yes (Other)
  Sender: FDA-Public Use
  Company Number: PHHY2010DE18157

PATIENT
  Sex: Female

DRUGS (5)
  1. FEMARA [Suspect]
     Indication: BREAST CANCER
     Dosage: 1 DF, QD
     Route: 048
     Dates: start: 20100317
  2. OPIPRAMOL [Concomitant]
  3. ZOLPIDEM [Concomitant]
  4. DOXYLAMINE [Concomitant]
  5. VALERIAN [Concomitant]

REACTIONS (18)
  - HYPERHIDROSIS [None]
  - LOSS OF CONSCIOUSNESS [None]
  - BACK PAIN [None]
  - FATIGUE [None]
  - DEPRESSED MOOD [None]
  - DIZZINESS [None]
  - MALAISE [None]
  - NAUSEA [None]
  - ALOPECIA [None]
  - DRY MOUTH [None]
  - TRIGGER FINGER [None]
  - OEDEMA PERIPHERAL [None]
  - PAIN IN EXTREMITY [None]
  - HYPOAESTHESIA [None]
  - VAGINAL HAEMORRHAGE [None]
  - HEADACHE [None]
  - CARPAL TUNNEL SYNDROME [None]
  - ARTHRALGIA [None]
